FAERS Safety Report 9426657 (Version 1)
Quarter: 2013Q3

REPORT INFORMATION
  Report Type: Spontaneous
  Country: US (occurrence: None)
  Receive Date: 20130729
  Receipt Date: 20130729
  Transmission Date: 20140515
  Serious: No
  Sender: FDA-Public Use
  Company Number: None

PATIENT
  Age: 69 Year
  Sex: Female
  Weight: 58.06 kg

DRUGS (6)
  1. CANDESARTAN CILEXETIL [Suspect]
     Indication: HYPERTENSION
     Dosage: 8MG?90 COUNT?2 TABS EVERY MORNING AND 1 TAB EVERY EVENING?BY MOUTH
     Route: 048
     Dates: start: 20130714, end: 20130716
  2. ATACAND [Concomitant]
  3. CALCIUM WITH VITAMIN D [Concomitant]
  4. VITAMIN B12 [Concomitant]
  5. FISH OIL [Concomitant]
  6. OVER THE COUNTER MULTIVITAMIN [Concomitant]

REACTIONS (8)
  - Sinus headache [None]
  - Tinnitus [None]
  - Fatigue [None]
  - Tremor [None]
  - Blood pressure increased [None]
  - Muscle tightness [None]
  - Musculoskeletal stiffness [None]
  - Product substitution issue [None]
